FAERS Safety Report 24165073 (Version 4)
Quarter: 2024Q4

REPORT INFORMATION
  Report Type: Report from Study
  Country: US (occurrence: US)
  Receive Date: 20240802
  Receipt Date: 20241225
  Transmission Date: 20250115
  Serious: No
  Sender: SANDOZ
  Company Number: US-002147023-NVSC2021US042019

PATIENT
  Sex: Male

DRUGS (2)
  1. OMNITROPE [Suspect]
     Active Substance: SOMATROPIN
     Indication: Short stature
     Dosage: 2.1 MG, QD
     Route: 058
  2. OMNITROPE [Suspect]
     Active Substance: SOMATROPIN
     Indication: Short stature
     Dosage: 2.1 MG, QD
     Route: 058

REACTIONS (6)
  - Growth disorder [Unknown]
  - Inadvertent injection air bubble [Unknown]
  - Circumstance or information capable of leading to medication error [Unknown]
  - Drug delivery system issue [Unknown]
  - Product knowledge deficit [Unknown]
  - Liquid product physical issue [Unknown]
